FAERS Safety Report 8369628-0 (Version None)
Quarter: 2012Q2

REPORT INFORMATION
  Report Type: 
  Country: None (occurrence: None)
  Receive Date: 20120518
  Receipt Date: 20120515
  Transmission Date: 20120825
  Serious: Yes (Other)
  Sender: FDA-Public Use
  Company Number: PHHY2012NL041969

PATIENT
  Sex: Female

DRUGS (3)
  1. ZOMETA [Suspect]
     Indication: BREAST CANCER METASTATIC
     Dosage: 4 MG/100ML (100 ML IN 20 MIN) 1X PER 28 DAYS
     Route: 042
     Dates: start: 20100909
  2. ZOMETA [Suspect]
     Dosage: 4 MG/100ML (100 ML IN 20 MIN) 1X PER 28 DAYS
     Route: 042
     Dates: start: 20120515
  3. ZOMETA [Suspect]
     Dosage: 4 MG/100ML (100 ML IN 20 MIN) 1X PER 28 DAYS
     Route: 042
     Dates: start: 20120417

REACTIONS (2)
  - FATIGUE [None]
  - GENERAL PHYSICAL HEALTH DETERIORATION [None]
